FAERS Safety Report 7323751-8 (Version None)
Quarter: 2011Q1

REPORT INFORMATION
  Report Type: 
  Country: None (occurrence: None)
  Receive Date: 20110216
  Receipt Date: 20110202
  Transmission Date: 20110831
  Serious: Yes (Death, Hospitalization)
  Sender: FDA-Public Use
  Company Number: 2011MA000997

PATIENT
  Age: 69 Year
  Sex: Male

DRUGS (1)
  1. VINORELBINE [Suspect]

REACTIONS (3)
  - SEPTIC SHOCK [None]
  - ACUTE MYELOID LEUKAEMIA [None]
  - PSEUDOMONAL BACTERAEMIA [None]
